FAERS Safety Report 23918928 (Version 2)
Quarter: 2024Q3

REPORT INFORMATION
  Report Type: Spontaneous
  Country: ES (occurrence: ES)
  Receive Date: 20240530
  Receipt Date: 20240706
  Transmission Date: 20241016
  Serious: Yes (Hospitalization, Other)
  Sender: AUROBINDO
  Company Number: ES-009507513-2405ESP004930

PATIENT
  Age: 72 Year
  Sex: Male

DRUGS (4)
  1. CARBOPLATIN [Suspect]
     Active Substance: CARBOPLATIN
     Indication: Neoplasm progression
     Dosage: UNK
     Route: 065
     Dates: start: 202203
  2. PEMETREXED [Suspect]
     Active Substance: PEMETREXED
     Indication: Neoplasm progression
     Dosage: UNK
     Route: 065
     Dates: start: 202203
  3. PEMBROLIZUMAB [Suspect]
     Active Substance: PEMBROLIZUMAB
     Indication: Lung adenocarcinoma stage IV
     Dosage: UNK
     Route: 065
     Dates: start: 2019
  4. PEMBROLIZUMAB [Suspect]
     Active Substance: PEMBROLIZUMAB
     Indication: Neoplasm progression
     Dosage: UNK
     Route: 065
     Dates: start: 2022

REACTIONS (4)
  - Renal tubular necrosis [Unknown]
  - Glomerulonephropathy [Unknown]
  - Immune thrombocytopenia [Unknown]
  - Product use in unapproved indication [Unknown]

NARRATIVE: CASE EVENT DATE: 20220301
